FAERS Safety Report 20643952 (Version 1)
Quarter: 2022Q1

REPORT INFORMATION
  Report Type: Spontaneous
  Country: US (occurrence: None)
  Receive Date: 20220327
  Receipt Date: 20220327
  Transmission Date: 20220424
  Serious: Yes (Hospitalization)
  Sender: FDA-Public Use
  Company Number: None

PATIENT
  Age: 84 Year
  Sex: Female
  Weight: 63.05 kg

DRUGS (21)
  1. SODIUM CHLORIDE [Suspect]
     Active Substance: SODIUM CHLORIDE
  2. AUGMENTIN [Concomitant]
     Active Substance: AMOXICILLIN\CLAVULANATE POTASSIUM
  3. BACTRIM [Concomitant]
     Active Substance: SULFAMETHOXAZOLE\TRIMETHOPRIM
  4. ATORVASTATIN [Concomitant]
     Active Substance: ATORVASTATIN
  5. diltiazem la [Concomitant]
  6. DORZOLAMIDE\TIMOLOL [Concomitant]
     Active Substance: DORZOLAMIDE\TIMOLOL
  7. ENALAPRIL [Concomitant]
     Active Substance: ENALAPRIL
  8. LATANOPROST [Concomitant]
     Active Substance: LATANOPROST
  9. EMLA [Concomitant]
     Active Substance: LIDOCAINE\PRILOCAINE
  10. ATIVAN [Concomitant]
     Active Substance: LORAZEPAM
  11. URSODIOL [Concomitant]
     Active Substance: URSODIOL
  12. TYLENOL [Concomitant]
     Active Substance: ACETAMINOPHEN
  13. ASPIRIN [Concomitant]
     Active Substance: ASPIRIN
  14. CALCIUM CITRATE [Concomitant]
     Active Substance: CALCIUM CITRATE
  15. CARBOXYMETHYLCELLULOSE [Concomitant]
     Active Substance: CARBOXYMETHYLCELLULOSE
  16. ZYRTEC [Concomitant]
     Active Substance: CETIRIZINE HYDROCHLORIDE
  17. PEPCID COMPLETE [Concomitant]
     Active Substance: CALCIUM CARBONATE\FAMOTIDINE\MAGNESIUM HYDROXIDE
  18. IRON [Concomitant]
     Active Substance: IRON
  19. MAGNESIUM [Concomitant]
     Active Substance: MAGNESIUM
  20. VITAMINS [Concomitant]
     Active Substance: VITAMINS
  21. MIRALAX [Concomitant]
     Active Substance: POLYETHYLENE GLYCOL 3350

REACTIONS (9)
  - Syringe issue [None]
  - Suspected product contamination [None]
  - Product substitution issue [None]
  - Complication associated with device [None]
  - Product odour abnormal [None]
  - Bile culture positive [None]
  - Culture urine positive [None]
  - Blood culture positive [None]
  - Infection [None]

NARRATIVE: CASE EVENT DATE: 20220323
